FAERS Safety Report 10058481 (Version 1)
Quarter: 2014Q2

REPORT INFORMATION
  Report Type: Report from Study
  Country: ZA (occurrence: ZA)
  Receive Date: 20140404
  Receipt Date: 20140404
  Transmission Date: 20141212
  Serious: Yes (Life-Threatening, Hospitalization)
  Sender: FDA-Public Use
  Company Number: ZA-SA-2014SA041460

PATIENT
  Age: 55 Year
  Sex: Male
  Weight: 58 kg

DRUGS (11)
  1. RIFAMPICIN [Suspect]
     Indication: PRODUCT USED FOR UNKNOWN INDICATION
     Route: 065
     Dates: start: 20110120
  2. MOXIFLOXACIN [Suspect]
     Indication: PRODUCT USED FOR UNKNOWN INDICATION
     Route: 048
     Dates: start: 20110120
  3. PYRAZINAMIDE [Suspect]
     Indication: PRODUCT USED FOR UNKNOWN INDICATION
     Route: 065
     Dates: start: 20110120
  4. ETHAMBUTOL [Suspect]
     Indication: PRODUCT USED FOR UNKNOWN INDICATION
     Route: 065
     Dates: start: 20110120
  5. PLACEBO [Suspect]
     Indication: PRODUCT USED FOR UNKNOWN INDICATION
  6. GLUCOPHAGE [Concomitant]
     Dates: start: 200705
  7. GLICLAZIDE [Concomitant]
     Dates: start: 200705
  8. GLICLAZIDE [Concomitant]
     Dates: start: 20110221
  9. IBUPROFEN [Concomitant]
     Dates: start: 201101
  10. VITAMIN B COMPLEX [Concomitant]
     Dates: start: 201101
  11. VITAMIN C [Concomitant]
     Dates: start: 201101

REACTIONS (5)
  - Hypoglycaemia [Recovered/Resolved]
  - Somnolence [Recovered/Resolved]
  - Asthenia [Recovered/Resolved]
  - Renal impairment [Recovered/Resolved]
  - Thrombocytosis [Recovering/Resolving]
